FAERS Safety Report 4708476-7 (Version None)
Quarter: 2005Q3

REPORT INFORMATION
  Report Type: 
  Country: None (occurrence: None)
  Receive Date: 20050705
  Receipt Date: 20050624
  Transmission Date: 20060218
  Serious: Yes (Life-Threatening, Other)
  Sender: FDA-Public Use
  Company Number: HQWYE704327JUN05

PATIENT
  Age: 52 Year
  Sex: Male

DRUGS (1)
  1. AMIODARONE (AMIODARONE, INJECTION) [Suspect]
     Indication: ATRIAL FIBRILLATION
     Dosage: 300 MG 1X PER 1 DAY INTRAVENOUS
     Route: 042
     Dates: start: 20050529, end: 20050529

REACTIONS (3)
  - HYPERHIDROSIS [None]
  - HYPOTENSION [None]
  - SKIN DISCOLOURATION [None]
